FAERS Safety Report 11011461 (Version 2)
Quarter: 2015Q2

REPORT INFORMATION
  Report Type: Spontaneous
  Country: US (occurrence: US)
  Receive Date: 20150410
  Receipt Date: 20150525
  Transmission Date: 20150821
  Serious: No
  Sender: FDA-Public Use
  Company Number: US-JNJFOC-20130203043

PATIENT
  Sex: Female

DRUGS (7)
  1. IMURAN [Concomitant]
     Active Substance: AZATHIOPRINE
     Indication: CROHN^S DISEASE
     Route: 065
  2. REMICADE [Suspect]
     Active Substance: INFLIXIMAB
     Indication: CROHN^S DISEASE
     Route: 042
  3. HUMIRA [Suspect]
     Active Substance: ADALIMUMAB
     Indication: CROHN^S DISEASE
     Route: 065
  4. CIMZIA [Suspect]
     Active Substance: CERTOLIZUMAB PEGOL
     Indication: CROHN^S DISEASE
     Dosage: 3 INJECTIONS
     Route: 065
  5. REMICADE [Suspect]
     Active Substance: INFLIXIMAB
     Indication: CROHN^S DISEASE
     Route: 042
     Dates: end: 2011
  6. PREDNISONE. [Concomitant]
     Active Substance: PREDNISONE
     Route: 065
  7. 6-MERCAPTOPURINE [Concomitant]
     Active Substance: MERCAPTOPURINE
     Indication: CROHN^S DISEASE
     Route: 065

REACTIONS (14)
  - Migraine [Unknown]
  - Movement disorder [Unknown]
  - Nervous system disorder [Unknown]
  - Infusion related reaction [Unknown]
  - Pyrexia [Unknown]
  - Fatigue [Unknown]
  - Pain [Unknown]
  - Muscular weakness [Unknown]
  - Dizziness [Unknown]
  - Limb discomfort [Unknown]
  - Diarrhoea [Unknown]
  - Hypersensitivity [Unknown]
  - Tremor [Unknown]
  - Muscle spasms [Unknown]
